FAERS Safety Report 5081610-8 (Version None)
Quarter: 2006Q3

REPORT INFORMATION
  Report Type: 
  Country: None (occurrence: None)
  Receive Date: 20060811
  Receipt Date: 20060804
  Transmission Date: 20061208
  Serious: Yes (Life-Threatening)
  Sender: FDA-Public Use
  Company Number: 2006-04339

PATIENT
  Age: 73 Year
  Sex: Male

DRUGS (7)
  1. TRELSTAR [Suspect]
     Indication: PROSTATE CANCER METASTATIC
     Dosage: 11.25 MG Q 3 MONTHS, INTRAMUSCULAR
     Route: 030
     Dates: start: 20060314, end: 20060614
  2. CIPRALAN [Concomitant]
  3. VALSARTAN [Concomitant]
  4. ICAZ (ISRADIPINE) [Concomitant]
  5. BUMETANIDE [Concomitant]
  6. KARDEGIC (ACETYLSLICYLATE LYSINE) [Concomitant]
  7. PROZAC [Concomitant]

REACTIONS (6)
  - ACUTE PULMONARY OEDEMA [None]
  - ASTHENIA [None]
  - CARDIAC FAILURE [None]
  - HEADACHE [None]
  - HYPERTENSIVE CRISIS [None]
  - VERTIGO [None]
